FAERS Safety Report 22289480 (Version 1)
Quarter: 2023Q2

REPORT INFORMATION
  Report Type: Spontaneous
  Country: US (occurrence: None)
  Receive Date: 20230505
  Receipt Date: 20230505
  Transmission Date: 20230721
  Serious: Yes (Hospitalization)
  Sender: FDA-Public Use
  Company Number: None

PATIENT
  Age: 66 Year
  Sex: Male
  Weight: 97.07 kg

DRUGS (18)
  1. CAPECITABINE [Suspect]
     Active Substance: CAPECITABINE
     Indication: Rectal cancer
     Dosage: 1500MG TWICE DAILY ORAL - 5 DAYS A WEEK?
     Route: 050
     Dates: start: 202303, end: 20230429
  2. CAPECITABINE [Suspect]
     Active Substance: CAPECITABINE
     Indication: Rectal cancer
     Dosage: 300MG TWICE DAILY ORAL - 5 DAYS A WEEK?
     Route: 050
     Dates: start: 202303, end: 20230429
  3. CHONDROITIN SULFATE (BOVINE) [Concomitant]
     Active Substance: CHONDROITIN SULFATE (BOVINE)
  4. DEXAMETHASONE [Concomitant]
  5. ELIQUIS [Concomitant]
     Active Substance: APIXABAN
  6. FLUOXETINE [Concomitant]
  7. GLUCOSAMINE [Concomitant]
     Active Substance: GLUCOSAMINE
  8. IBUPROFEN [Concomitant]
  9. LEVOTHYROXINE [Concomitant]
  10. LIDOCAINE AND PRILOCAINE [Concomitant]
  11. LOSARTAN [Concomitant]
  12. MAGNESIUM OXIDE [Concomitant]
     Active Substance: MAGNESIUM OXIDE
  13. METOPROLOL [Concomitant]
  14. Multivitamin [Concomitant]
  15. NORCO [Concomitant]
     Active Substance: ACETAMINOPHEN\HYDROCODONE BITARTRATE
  16. ONDANSETRON [Concomitant]
     Active Substance: ONDANSETRON
  17. TAMSULOSIN [Concomitant]
  18. TESTOSTERONE [Concomitant]
     Active Substance: TESTOSTERONE

REACTIONS (3)
  - Fall [None]
  - Therapy interrupted [None]
  - Craniocerebral injury [None]

NARRATIVE: CASE EVENT DATE: 20230429
